FAERS Safety Report 17774850 (Version 1)
Quarter: 2020Q2

REPORT INFORMATION
  Report Type: Spontaneous
  Country: US (occurrence: US)
  Receive Date: 20200512
  Receipt Date: 20200512
  Transmission Date: 20200714
  Serious: Yes (Other)
  Sender: FDA-Public Use
  Company Number: None

PATIENT
  Age: 61 Year
  Sex: Male
  Weight: 83 kg

DRUGS (13)
  1. REMDESIVIR. [Suspect]
     Active Substance: REMDESIVIR
     Indication: COVID-19
     Route: 041
     Dates: start: 20200509, end: 20200510
  2. QUETIAPINE. [Concomitant]
     Active Substance: QUETIAPINE
     Dates: start: 20200428, end: 20200511
  3. DOCUSATE [Concomitant]
     Active Substance: DOCUSATE
     Dates: start: 20200427, end: 20200512
  4. CEFEPIME [Concomitant]
     Active Substance: CEFEPIME HYDROCHLORIDE
     Dates: start: 20200508, end: 20200512
  5. DIAZEPAM. [Concomitant]
     Active Substance: DIAZEPAM
     Dates: start: 20200427, end: 20200511
  6. PROPOFOL. [Concomitant]
     Active Substance: PROPOFOL
     Dates: start: 20200502, end: 20200512
  7. FENTANYL. [Concomitant]
     Active Substance: FENTANYL
     Dates: start: 20200420, end: 20200512
  8. FUROSEMIDE. [Concomitant]
     Active Substance: FUROSEMIDE
     Dates: start: 20200503, end: 20200510
  9. VANCOMYCIN [Concomitant]
     Active Substance: VANCOMYCIN
     Dates: start: 20200508, end: 20200511
  10. PANTOPRAZOLE [Concomitant]
     Active Substance: PANTOPRAZOLE
     Dates: start: 20200420, end: 20200512
  11. HEPARIN 7,500 UNITS SQ [Concomitant]
     Dates: start: 20200506, end: 20200512
  12. INSULIN LISPRO [Concomitant]
     Active Substance: INSULIN LISPRO
     Dates: start: 20200420, end: 20200512
  13. NOREPINEPHRINE. [Concomitant]
     Active Substance: NOREPINEPHRINE
     Dates: start: 20200506, end: 20200512

REACTIONS (7)
  - Renal tubular necrosis [None]
  - Weight decreased [None]
  - Haemodynamic instability [None]
  - Acute kidney injury [None]
  - Respiratory failure [None]
  - Hypotension [None]
  - COVID-19 pneumonia [None]

NARRATIVE: CASE EVENT DATE: 20200511
